FAERS Safety Report 17866747 (Version 2)
Quarter: 2020Q4

REPORT INFORMATION
  Report Type: Spontaneous
  Country: US (occurrence: US)
  Receive Date: 20200605
  Receipt Date: 20201211
  Transmission Date: 20210113
  Serious: No
  Sender: FDA-Public Use
  Company Number: US-SA-2020SA144397

PATIENT

DRUGS (1)
  1. DUPIXENT [Suspect]
     Active Substance: DUPILUMAB
     Dosage: 300 MG, QOW
     Route: 058

REACTIONS (8)
  - Skin erosion [Unknown]
  - Injection site irritation [Unknown]
  - Injection site erythema [Unknown]
  - Pruritus [Unknown]
  - Injection site rash [Unknown]
  - Injection site pain [Unknown]
  - Injection site haemorrhage [Unknown]
  - Skin exfoliation [Unknown]
